FAERS Safety Report 15352786 (Version 1)
Quarter: 2018Q3

REPORT INFORMATION
  Report Type: Spontaneous
  Country: US (occurrence: US)
  Receive Date: 20180829
  Receipt Date: 20180829
  Transmission Date: 20181010
  Serious: No
  Sender: FDA-Public Use
  Company Number: None

PATIENT
  Age: 79 Year
  Sex: Female

DRUGS (1)
  1. COPAXONE [Suspect]
     Active Substance: GLATIRAMER ACETATE
     Indication: MULTIPLE SCLEROSIS
     Route: 058
     Dates: start: 20170309

REACTIONS (5)
  - Chest pain [None]
  - Headache [None]
  - Chills [None]
  - Influenza like illness [None]
  - Spinal pain [None]

NARRATIVE: CASE EVENT DATE: 20180723
